FAERS Safety Report 9506817 (Version 1)
Quarter: 2013Q3

REPORT INFORMATION
  Report Type: Spontaneous
  Country: US (occurrence: US)
  Receive Date: 20130909
  Receipt Date: 20130909
  Transmission Date: 20140515
  Serious: Yes (Death, Other)
  Sender: FDA-Public Use
  Company Number: US-ROCHE-1269965

PATIENT
  Sex: Female
  Weight: 6 kg

DRUGS (16)
  1. KLONOPIN [Suspect]
     Indication: INFANTILE SPASMS
     Dosage: HALF A TABLET
     Route: 048
  2. KLONOPIN [Suspect]
     Route: 065
  3. KLONOPIN [Suspect]
     Route: 065
  4. SABRIL [Suspect]
     Indication: INFANTILE SPASMS
     Route: 048
     Dates: start: 20110712
  5. SABRIL [Suspect]
     Indication: EPILEPSY
     Route: 048
  6. SABRIL [Suspect]
     Route: 048
  7. SABRIL [Suspect]
     Route: 065
  8. SABRIL [Suspect]
     Route: 065
     Dates: start: 20120319
  9. SABRIL [Suspect]
     Route: 065
  10. TOPAMAX [Suspect]
     Indication: INFANTILE SPASMS
     Route: 065
  11. TOPAMAX [Suspect]
     Dosage: 7.5 ML
     Route: 065
  12. TOPAMAX [Suspect]
     Dosage: 6 MG/ML
     Route: 065
  13. KEPPRA [Concomitant]
     Indication: PRODUCT USED FOR UNKNOWN INDICATION
  14. PREDNISONE [Concomitant]
     Indication: PRODUCT USED FOR UNKNOWN INDICATION
  15. ZANTAC [Concomitant]
     Indication: PRODUCT USED FOR UNKNOWN INDICATION
  16. PHENOBARBITAL [Concomitant]

REACTIONS (4)
  - Death [Fatal]
  - Tonic convulsion [Unknown]
  - Convulsion [Unknown]
  - Drug ineffective [Unknown]
